FAERS Safety Report 12282485 (Version 2)
Quarter: 2017Q1

REPORT INFORMATION
  Report Type: Report from Study
  Country: AR (occurrence: AR)
  Receive Date: 20160419
  Receipt Date: 20170210
  Transmission Date: 20170428
  Serious: Yes (Other)
  Sender: FDA-Public Use
  Company Number: PHHY2016AR049620

PATIENT
  Sex: Female

DRUGS (2)
  1. DIOVAN [Suspect]
     Active Substance: VALSARTAN
     Indication: HYPERTENSION
     Dosage: 160 MG, QD
     Route: 065
  2. DIOVAN D [Suspect]
     Active Substance: HYDROCHLOROTHIAZIDE\VALSARTAN
     Indication: HYPERTENSION
     Route: 065

REACTIONS (6)
  - Intervertebral disc protrusion [Unknown]
  - Movement disorder [Recovering/Resolving]
  - Blood pressure decreased [Recovering/Resolving]
  - Breast cancer [Recovering/Resolving]
  - Fall [Recovering/Resolving]
  - Memory impairment [Unknown]
